FAERS Safety Report 12778707 (Version 4)
Quarter: 2017Q2

REPORT INFORMATION
  Report Type: Spontaneous
  Country: US (occurrence: US)
  Receive Date: 20160926
  Receipt Date: 20170417
  Transmission Date: 20170830
  Serious: No
  Sender: FDA-Public Use
  Company Number: US-TEVA-695888USA

PATIENT
  Sex: Female

DRUGS (21)
  1. COPAXONE [Suspect]
     Active Substance: GLATIRAMER ACETATE
     Route: 058
     Dates: start: 20150602
  2. VENLAFAXINE [Concomitant]
     Active Substance: VENLAFAXINE HYDROCHLORIDE
  3. TIZANIDINE. [Concomitant]
     Active Substance: TIZANIDINE
  4. TEGRETOL [Concomitant]
     Active Substance: CARBAMAZEPINE
  5. ZANAFLEX [Concomitant]
     Active Substance: TIZANIDINE HYDROCHLORIDE
  6. PRAVACHOL [Concomitant]
     Active Substance: PRAVASTATIN SODIUM
  7. METHYLPREDNISONE [Concomitant]
     Active Substance: METHYLPREDNISOLONE
  8. NORCO [Concomitant]
     Active Substance: ACETAMINOPHEN\HYDROCODONE BITARTRATE
  9. DICLOFENAC [Concomitant]
     Active Substance: DICLOFENAC
  10. METFORMIN [Concomitant]
     Active Substance: METFORMIN HYDROCHLORIDE
  11. METHYLPHENIDATE. [Concomitant]
     Active Substance: METHYLPHENIDATE
  12. BACLOFEN. [Concomitant]
     Active Substance: BACLOFEN
  13. LYRICA [Concomitant]
     Active Substance: PREGABALIN
  14. GABAPENTIN. [Concomitant]
     Active Substance: GABAPENTIN
  15. CLARITIN-D NOS [Concomitant]
     Active Substance: LORATADINE\PSEUDOEPHEDRINE SULFATE
  16. SOLU-CORTEF [Concomitant]
     Active Substance: HYDROCORTISONE SODIUM SUCCINATE
  17. NEURONTIN [Concomitant]
     Active Substance: GABAPENTIN
  18. CLONAZEPAM. [Concomitant]
     Active Substance: CLONAZEPAM
  19. MELOXICAM. [Concomitant]
     Active Substance: MELOXICAM
  20. PRAVASTATIN. [Concomitant]
     Active Substance: PRAVASTATIN
  21. EFFEXOR [Concomitant]
     Active Substance: VENLAFAXINE HYDROCHLORIDE

REACTIONS (6)
  - Fall [Not Recovered/Not Resolved]
  - Drug dose omission [Unknown]
  - Muscular weakness [Unknown]
  - Back pain [Unknown]
  - Night sweats [Unknown]
  - Memory impairment [Unknown]

NARRATIVE: CASE EVENT DATE: 2016
